FAERS Safety Report 21734432 (Version 1)
Quarter: 2022Q4

REPORT INFORMATION
  Report Type: Spontaneous
  Country: US (occurrence: US)
  Receive Date: 20221215
  Receipt Date: 20221215
  Transmission Date: 20230113
  Serious: Yes (Death, Other)
  Sender: FDA-Public Use
  Company Number: US-TAKEDA-2022TUS097044

PATIENT
  Sex: Female

DRUGS (4)
  1. GATTEX [Suspect]
     Active Substance: TEDUGLUTIDE\WATER
     Indication: Product used for unknown indication
     Dosage: 0.5 MILLIGRAM/KILOGRAM, QOD
     Route: 050
     Dates: start: 201706
  2. GATTEX [Suspect]
     Active Substance: TEDUGLUTIDE\WATER
     Indication: Product used for unknown indication
     Dosage: 0.5 MILLIGRAM/KILOGRAM, QOD
     Route: 050
     Dates: start: 201706
  3. GATTEX [Suspect]
     Active Substance: TEDUGLUTIDE\WATER
     Indication: Product used for unknown indication
     Dosage: 0.5 MILLIGRAM/KILOGRAM, QOD
     Route: 050
     Dates: start: 201706
  4. GATTEX [Suspect]
     Active Substance: TEDUGLUTIDE\WATER
     Indication: Product used for unknown indication
     Dosage: 0.5 MILLIGRAM/KILOGRAM, QOD
     Route: 050
     Dates: start: 201706

REACTIONS (1)
  - Gastrointestinal perforation [Fatal]
